FAERS Safety Report 17798075 (Version 3)
Quarter: 2020Q2

REPORT INFORMATION
  Report Type: Spontaneous
  Country: CZ (occurrence: CZ)
  Receive Date: 20200518
  Receipt Date: 20200623
  Transmission Date: 20200714
  Serious: No
  Sender: FDA-Public Use
  Company Number: CZ-ROCHE-2601722

PATIENT
  Age: 33 Year
  Sex: Male

DRUGS (11)
  1. OSELTAMIVIR [Suspect]
     Active Substance: OSELTAMIVIR
     Indication: PNEUMONIA NECROTISING
     Route: 065
  2. VORICONAZOLE. [Concomitant]
     Active Substance: VORICONAZOLE
  3. TIGECYCLINE. [Concomitant]
     Active Substance: TIGECYCLINE
  4. LINEZOLID. [Concomitant]
     Active Substance: LINEZOLID
  5. CIPROFLOXACIN. [Concomitant]
     Active Substance: CIPROFLOXACIN
  6. TOBRAMYCIN. [Concomitant]
     Active Substance: TOBRAMYCIN
  7. CLINDAMYCIN. [Concomitant]
     Active Substance: CLINDAMYCIN
  8. OFLOXACIN. [Concomitant]
     Active Substance: OFLOXACIN
  9. CEFTRIAXONE. [Concomitant]
     Active Substance: CEFTRIAXONE
  10. FLUCONAZOLE. [Concomitant]
     Active Substance: FLUCONAZOLE
  11. AMOXICILLIN. [Concomitant]
     Active Substance: AMOXICILLIN

REACTIONS (3)
  - Intentional product use issue [Unknown]
  - No adverse event [Unknown]
  - Off label use [Unknown]
